FAERS Safety Report 10005376 (Version 2)
Quarter: 2014Q1

REPORT INFORMATION
  Report Type: Spontaneous
  Country: US (occurrence: US)
  Receive Date: 20140312
  Receipt Date: 20140312
  Transmission Date: 20141002
  Serious: Yes (Other)
  Sender: FDA-Public Use
  Company Number: US-US-EMD SERONO, INC.-7110344

PATIENT
  Age: 47 Year
  Sex: Male

DRUGS (4)
  1. REBIF [Suspect]
     Indication: MULTIPLE SCLEROSIS
     Dates: start: 20030116, end: 200802
  2. REBIF [Suspect]
     Dates: start: 20120220
  3. TYSABRI [Suspect]
     Indication: MULTIPLE SCLEROSIS
  4. AVONEX [Suspect]
     Indication: MULTIPLE SCLEROSIS
     Dates: start: 200803

REACTIONS (2)
  - Colon cancer [Recovered/Resolved]
  - Peroneal nerve palsy [Not Recovered/Not Resolved]
